FAERS Safety Report 5691889-7 (Version None)
Quarter: 2008Q2

REPORT INFORMATION
  Report Type: 
  Country: None (occurrence: None)
  Receive Date: 20080401
  Receipt Date: 20080401
  Transmission Date: 20081010
  Serious: Yes (Hospitalization)
  Sender: FDA-Public Use
  Company Number: None

PATIENT
  Age: 72 Year
  Sex: Male
  Weight: 66.2 kg

DRUGS (2)
  1. CAPTOPRIL [Suspect]
     Indication: DIABETES MELLITUS
     Dosage: 12.5MG BID PO
     Route: 048
     Dates: start: 20070911, end: 20080116
  2. CAPTOPRIL [Suspect]
     Indication: HYPERTENSION
     Dosage: 12.5MG BID PO
     Route: 048
     Dates: start: 20070911, end: 20080116

REACTIONS (5)
  - ARTHROPATHY [None]
  - FALL [None]
  - HYPOTENSION [None]
  - JOINT DISLOCATION [None]
  - OPEN FRACTURE [None]
